FAERS Safety Report 10474273 (Version 1)
Quarter: 2014Q3

REPORT INFORMATION
  Report Type: Spontaneous
  Country: US (occurrence: US)
  Receive Date: 20140924
  Receipt Date: 20140924
  Transmission Date: 20150326
  Serious: No
  Sender: FDA-Public Use
  Company Number: US-GLAXOSMITHKLINE-A1040725A

PATIENT
  Age: 56 Year
  Sex: Female
  Weight: 63.6 kg

DRUGS (5)
  1. BUPROPION [Concomitant]
     Active Substance: BUPROPION
  2. CLONAZEPAM. [Concomitant]
     Active Substance: CLONAZEPAM
  3. TRAMADOL [Concomitant]
     Active Substance: TRAMADOL
  4. ANASTROZOLE. [Concomitant]
     Active Substance: ANASTROZOLE
  5. SUMATRIPTAN [Suspect]
     Active Substance: SUMATRIPTAN
     Indication: MIGRAINE
     Dosage: 5MG UNKNOWN
     Route: 065
     Dates: start: 1998

REACTIONS (2)
  - Product quality issue [Unknown]
  - Drug ineffective [Recovered/Resolved]

NARRATIVE: CASE EVENT DATE: 20130902
